FAERS Safety Report 7592298-6 (Version None)
Quarter: 2011Q3

REPORT INFORMATION
  Report Type: 
  Country: None (occurrence: None)
  Receive Date: 20110706
  Receipt Date: 20110628
  Transmission Date: 20111222
  Serious: Yes (Life-Threatening)
  Sender: FDA-Public Use
  Company Number: CN-BRACCO-000214

PATIENT
  Age: 26 Year
  Sex: Male

DRUGS (1)
  1. MULTIHANCE [Suspect]
     Indication: NUCLEAR MAGNETIC RESONANCE IMAGING ABDOMINAL
     Route: 042
     Dates: start: 20110627, end: 20110627

REACTIONS (5)
  - PERIPHERAL COLDNESS [None]
  - MUSCLE SPASMS [None]
  - HEART RATE INCREASED [None]
  - CHILLS [None]
  - BLOOD PRESSURE IMMEASURABLE [None]
